FAERS Safety Report 9721560 (Version 1)
Quarter: 2013Q4

REPORT INFORMATION
  Report Type: Report from Study
  Country: AU (occurrence: AU)
  Receive Date: 20131130
  Receipt Date: 20131130
  Transmission Date: 20140711
  Serious: Yes (Other)
  Sender: FDA-Public Use
  Company Number: PHHY2013AU138256

PATIENT
  Age: 59 Year
  Sex: Male

DRUGS (1)
  1. ACLASTA [Suspect]
     Dosage: 5 MG
     Route: 042
     Dates: start: 20121127

REACTIONS (2)
  - Chest pain [Recovered/Resolved]
  - Pain [Recovered/Resolved]
